FAERS Safety Report 7608871-2 (Version None)
Quarter: 2011Q3

REPORT INFORMATION
  Report Type: 
  Country: None (occurrence: None)
  Receive Date: 20110714
  Receipt Date: 20110711
  Transmission Date: 20111222
  Serious: Yes (Other)
  Sender: FDA-Public Use
  Company Number: US-PFIZER INC-2011064302

PATIENT
  Sex: Male

DRUGS (3)
  1. DOXYCYCLINE [Concomitant]
     Indication: ANTIBIOTIC THERAPY
     Dosage: UNK
     Dates: start: 20050101, end: 20090101
  2. CHANTIX [Suspect]
     Indication: SMOKING CESSATION THERAPY
     Dosage: 0.5 MG AND 1MG CONTINUING MONTH PACK
     Dates: start: 20070101, end: 20080101
  3. RANITIDINE [Concomitant]
     Indication: CHRONIC OBSTRUCTIVE PULMONARY DISEASE
     Dosage: UNK
     Dates: start: 20070101

REACTIONS (10)
  - SUICIDE ATTEMPT [None]
  - ANGER [None]
  - DEPRESSION [None]
  - THANATOPHOBIA [None]
  - ANXIETY [None]
  - MOOD SWINGS [None]
  - CHEST PAIN [None]
  - PANIC ATTACK [None]
  - AGGRESSION [None]
  - IRRITABILITY [None]
